FAERS Safety Report 8579618-0 (Version None)
Quarter: 2012Q3

REPORT INFORMATION
  Report Type: 
  Country: None (occurrence: None)
  Receive Date: 20120731
  Receipt Date: 20120731
  Transmission Date: 20120928
  Serious: Yes (Hospitalization)
  Sender: FDA-Public Use
  Company Number: None

PATIENT
  Sex: Male
  Weight: 33 kg

DRUGS (1)
  1. TACROLIMUS 2.5 MG  Q12H PO [Suspect]
     Indication: HEART TRANSPLANT
     Dosage: PROGRAF 2.5MG Q12H PO 6/29/12 -} 7/17
     Route: 048

REACTIONS (3)
  - STATUS EPILEPTICUS [None]
  - UNRESPONSIVE TO STIMULI [None]
  - POSTERIOR REVERSIBLE ENCEPHALOPATHY SYNDROME [None]
